FAERS Safety Report 6175164-2 (Version None)
Quarter: 2009Q2

REPORT INFORMATION
  Report Type: 
  Country: None (occurrence: None)
  Receive Date: 20090430
  Receipt Date: 20090113
  Transmission Date: 20091009
  Serious: No
  Sender: FDA-Public Use
  Company Number: US-ASTRAZENECA-2009UW01140

PATIENT
  Age: 29225 Day
  Sex: Male
  Weight: 82.1 kg

DRUGS (3)
  1. NEXIUM [Suspect]
     Indication: GASTROOESOPHAGEAL REFLUX DISEASE
     Dosage: 40 MG
     Route: 048
     Dates: start: 20090106
  2. TEGRETOL [Concomitant]
  3. ZOCOR [Concomitant]

REACTIONS (1)
  - DIPLOPIA [None]
